FAERS Safety Report 9417584 (Version 2)
Quarter: 2013Q4

REPORT INFORMATION
  Report Type: Report from Study
  Country: BR (occurrence: BR)
  Receive Date: 20130722
  Receipt Date: 20131011
  Transmission Date: 20140711
  Serious: Yes (Other)
  Sender: FDA-Public Use
  Company Number: PHHY2013BR077394

PATIENT
  Sex: Female
  Weight: 66 kg

DRUGS (6)
  1. RITALIN LA [Suspect]
     Indication: AGITATION
     Dosage: 1 DF
  2. RITALIN LA [Suspect]
     Indication: APATHY
  3. CLOMIPRAMINE [Concomitant]
     Dosage: UNK UKN, UNK
  4. DIAZEPAN [Concomitant]
     Dosage: UNK UKN, UNK
  5. QUETIAPINE [Concomitant]
     Dosage: UNK UKN, UNK
  6. SALBUTAMOL [Concomitant]
     Dosage: UNK UKN, UNK

REACTIONS (6)
  - Depression [Unknown]
  - Irritability [Unknown]
  - Drug intolerance [Unknown]
  - Hypervigilance [Unknown]
  - Insomnia [Unknown]
  - Drug ineffective [Unknown]
